FAERS Safety Report 4621281-5 (Version None)
Quarter: 2005Q1

REPORT INFORMATION
  Report Type: 
  Country: None (occurrence: None)
  Receive Date: 20050329
  Receipt Date: 20050322
  Transmission Date: 20050727
  Serious: Yes (Death)
  Sender: FDA-Public Use
  Company Number: US-JNJFOC-20041103759

PATIENT
  Age: 23 Year
  Sex: Male

DRUGS (1)
  1. DURAGESIC-100 [Suspect]
     Indication: INTENTIONAL MISUSE
     Route: 050

REACTIONS (4)
  - ALCOHOL USE [None]
  - DRUG ABUSER [None]
  - INJURY ASPHYXIATION [None]
  - INTENTIONAL MISUSE [None]
